FAERS Safety Report 6914627-6 (Version None)
Quarter: 2010Q3

REPORT INFORMATION
  Report Type: 
  Country: None (occurrence: None)
  Receive Date: 20100805
  Receipt Date: 20100805
  Transmission Date: 20110219
  Serious: Yes (Hospitalization)
  Sender: FDA-Public Use
  Company Number: None

PATIENT
  Age: 62 Year
  Sex: Male

DRUGS (1)
  1. LISINOPRIL [Suspect]
     Indication: HYPERTENSION
     Dates: start: 20100301, end: 20100316

REACTIONS (10)
  - ANGIOEDEMA [None]
  - BLOOD CHLORIDE INCREASED [None]
  - BLOOD GLUCOSE INCREASED [None]
  - BLOOD SODIUM INCREASED [None]
  - DYSPHAGIA [None]
  - DYSPNOEA [None]
  - MEAN CELL VOLUME INCREASED [None]
  - OEDEMA [None]
  - SWOLLEN TONGUE [None]
  - UNEVALUABLE EVENT [None]
